FAERS Safety Report 10566102 (Version 1)
Quarter: 2014Q4

REPORT INFORMATION
  Report Type: Report from Study
  Country: US (occurrence: US)
  Receive Date: 20141105
  Receipt Date: 20141105
  Transmission Date: 20150529
  Serious: Yes (Death)
  Sender: FDA-Public Use
  Company Number: US-SA-2014SA149350

PATIENT
  Age: 51 Year
  Sex: Male

DRUGS (1)
  1. CAMPATH [Suspect]
     Active Substance: ALEMTUZUMAB
     Dosage: DOSE: 2 VIALS
     Route: 065
     Dates: start: 20140821, end: 20140823

REACTIONS (1)
  - Death [Fatal]

NARRATIVE: CASE EVENT DATE: 20140826
